FAERS Safety Report 4398860-6 (Version None)
Quarter: 2004Q3

REPORT INFORMATION
  Report Type: 
  Country: None (occurrence: None)
  Receive Date: 20040712
  Receipt Date: 20040630
  Transmission Date: 20050211
  Serious: Yes (Hospitalization)
  Sender: FDA-Public Use
  Company Number: US-JNJFOC-20040700478

PATIENT
  Age: 55 Year
  Sex: Female

DRUGS (8)
  1. DURAGESIC [Suspect]
     Indication: PAIN
     Dosage: 75 UG/HR, 1 IN 72 HOUR, TRANSDERMAL
     Route: 062
     Dates: start: 20040401
  2. PERCOCET [Concomitant]
  3. TAMAZEPAM (TEMAZEPAM) [Concomitant]
  4. NEURONTIN [Concomitant]
  5. BUSPAR [Concomitant]
  6. ATIVAN [Concomitant]
  7. LEXAPRO [Concomitant]
  8. PRILOSEC [Concomitant]

REACTIONS (1)
  - FALL [None]
